FAERS Safety Report 10698303 (Version 1)
Quarter: 2015Q1

REPORT INFORMATION
  Report Type: Spontaneous
  Country: US (occurrence: US)
  Receive Date: 20150108
  Receipt Date: 20150108
  Transmission Date: 20150721
  Serious: No
  Sender: FDA-Public Use
  Company Number: US-PFIZER INC-2015006743

PATIENT
  Age: 58 Year
  Sex: Male
  Weight: 87.98 kg

DRUGS (2)
  1. OXAPROZIN. [Suspect]
     Active Substance: OXAPROZIN
     Indication: ARTHRITIS
     Dosage: 600 MG, DAILY
     Dates: start: 201309, end: 201309
  2. OXAPROZIN. [Suspect]
     Active Substance: OXAPROZIN
     Indication: FIBROMYALGIA

REACTIONS (1)
  - Abdominal discomfort [Unknown]

NARRATIVE: CASE EVENT DATE: 201309
